FAERS Safety Report 5978675-5 (Version None)
Quarter: 2008Q4

REPORT INFORMATION
  Report Type: 
  Country: None (occurrence: None)
  Receive Date: 20081204
  Receipt Date: 20081126
  Transmission Date: 20090506
  Serious: Yes (Disabling, Other)
  Sender: FDA-Public Use
  Company Number: US-ASTRAZENECA-2008AC03100

PATIENT
  Age: 18 Year
  Sex: Female

DRUGS (6)
  1. BUPIVACAINE [Suspect]
     Indication: ARTHROSCOPY
     Dosage: PREINJECTION WITH EPINEPHRINE
     Route: 014
  2. BUPIVACAINE [Suspect]
     Dosage: GIVEN POSTOPERATIVELY AFTER ARTHROSCOPY LEFT SHOULDER
     Route: 014
  3. BUPIVACAINE [Suspect]
     Dosage: PREINJECTION WITH EPINEPHRINE
     Route: 014
  4. BUPIVACAINE [Suspect]
     Dosage: GIVEN POSTOPERATIVELY AFTER ARTHROSCOPY RIGHT SHOULDER
     Route: 014
  5. BUPIVACAINE [Suspect]
     Dosage: GIVEN POSTOPERATIVELY AFTER SURGERY TO LEFT SHOULDER
     Route: 014
  6. BUPIVACAINE [Suspect]
     Dosage: GIVEN POSTOPERATIVELY AFTER SECOND ARTHROSCOPY RIGHT SHOULDER
     Route: 014

REACTIONS (1)
  - CHONDROLYSIS [None]
